FAERS Safety Report 9197572 (Version 1)
Quarter: 2013Q1

REPORT INFORMATION
  Report Type: Report from Study
  Country: AU (occurrence: AU)
  Receive Date: 20130328
  Receipt Date: 20130328
  Transmission Date: 20140127
  Serious: Yes (Hospitalization)
  Sender: FDA-Public Use
  Company Number: AU-PFIZER INC-2013096233

PATIENT
  Age: 35 Year
  Sex: Male
  Weight: 144 kg

DRUGS (8)
  1. CYCLOPHOSPHAMIDE [Suspect]
     Indication: DIFFUSE LARGE B-CELL LYMPHOMA
     Dosage: 1680 MG, EVERY 3 WEEKS
     Route: 042
     Dates: start: 20120612
  2. DOXORUBICIN HCL [Suspect]
     Indication: DIFFUSE LARGE B-CELL LYMPHOMA
     Dosage: 112 MG, EVERY 3 WEEKS
     Route: 042
     Dates: start: 20120612
  3. VINCRISTINE [Suspect]
     Indication: DIFFUSE LARGE B-CELL LYMPHOMA
     Dosage: 2 MG, EVERY 3 WEEKS
     Route: 042
     Dates: start: 20120612
  4. PREDNISONE [Suspect]
     Indication: DIFFUSE LARGE B-CELL LYMPHOMA
     Dosage: 100 MG, EVERY 3 WEEKS
     Route: 048
     Dates: start: 20120612
  5. OBINUTUZUMAB [Suspect]
     Indication: DIFFUSE LARGE B-CELL LYMPHOMA
     Dosage: 250 ML WITH A DOSE CONCENTRATION 4 MG/ML, EVERY 3 WEEKS
     Route: 042
     Dates: start: 20120612
  6. PRAMIN [Concomitant]
     Indication: NAUSEA
     Dosage: UNK
     Dates: start: 20120616
  7. LORATADINE [Concomitant]
     Indication: PROPHYLAXIS
     Dosage: UNK
     Dates: start: 20120612
  8. ONDANSETRON [Concomitant]
     Indication: PROPHYLAXIS OF NAUSEA AND VOMITING
     Dosage: UNK
     Dates: start: 20120612

REACTIONS (1)
  - Spleen disorder [Not Recovered/Not Resolved]
